FAERS Safety Report 5601668-4 (Version None)
Quarter: 2008Q1

REPORT INFORMATION
  Report Type: 
  Country: None (occurrence: None)
  Receive Date: 20080124
  Receipt Date: 20080117
  Transmission Date: 20080703
  Serious: Yes (Other)
  Sender: FDA-Public Use
  Company Number: JP-BOEHRINGER INGELHEIM PHARMACEUTICALS, INC.-2008-BP-00875NB

PATIENT
  Age: 77 Year
  Sex: Female

DRUGS (4)
  1. PRAMIPEXOLE DIHYDROCHLORIDE [Suspect]
     Indication: PARKINSON'S DISEASE
     Route: 048
     Dates: start: 20070709, end: 20071219
  2. CARBIDOPA AND LEVODOPA [Suspect]
     Indication: PARKINSON'S DISEASE
     Route: 048
  3. ARICEPT [Suspect]
     Indication: HALLUCINATION, VISUAL
     Route: 048
     Dates: start: 20070725
  4. CALBLOCK [Suspect]
     Route: 048

REACTIONS (1)
  - POSTURE ABNORMAL [None]
